FAERS Safety Report 20186728 (Version 1)
Quarter: 2021Q4

REPORT INFORMATION
  Report Type: Spontaneous
  Country: CN (occurrence: CN)
  Receive Date: 20211215
  Receipt Date: 20211215
  Transmission Date: 20220304
  Serious: Yes (Other)
  Sender: FDA-Public Use
  Company Number: CN-ORGANON-O2112CHN000974

PATIENT
  Age: 62 Year
  Sex: Male
  Weight: 65 kg

DRUGS (4)
  1. DIPROSPAN [Suspect]
     Active Substance: BETAMETHASONE DIPROPIONATE\BETAMETHASONE SODIUM PHOSPHATE
     Indication: Sciatica
     Dosage: 1 VIAL, QD
     Dates: start: 20211117, end: 20211117
  2. LIDOCAINE HYDROCHLORIDE [Suspect]
     Active Substance: LIDOCAINE HYDROCHLORIDE
     Indication: Local anaesthesia
     Dosage: 5ML, QD
     Dates: start: 20211117, end: 20211117
  3. CYANOCOBALAMIN [Suspect]
     Active Substance: CYANOCOBALAMIN
     Indication: Neuropathy peripheral
     Dosage: 1ML, QD
     Dates: start: 20211117, end: 20211117
  4. SODIUM CHLORIDE [Concomitant]
     Active Substance: SODIUM CHLORIDE
     Indication: Vehicle solution use
     Dosage: 13ML, QD
     Dates: start: 20211117, end: 20211117

REACTIONS (1)
  - Anaphylactoid reaction [Recovering/Resolving]

NARRATIVE: CASE EVENT DATE: 20211117
